FAERS Safety Report 9442499 (Version 2)
Quarter: 2013Q3

REPORT INFORMATION
  Report Type: Spontaneous
  Country: US (occurrence: US)
  Receive Date: 20130806
  Receipt Date: 20130906
  Transmission Date: 20140515
  Serious: No
  Sender: FDA-Public Use
  Company Number: US-BAYER-2013-094650

PATIENT
  Age: 67 Year
  Sex: Female
  Weight: 63 kg

DRUGS (6)
  1. ESTRADIOL HEMIHYDRATE (6.5) [Suspect]
     Indication: MENOPAUSAL SYMPTOMS
     Dosage: 0.025 MG, OW
     Route: 062
     Dates: start: 199501
  2. FAMOTIDINE [Concomitant]
     Indication: APHTHOUS STOMATITIS
     Dosage: 25 MG, PRN
     Route: 048
     Dates: start: 2008
  3. FIORICET [Concomitant]
     Indication: MIGRAINE
     Dosage: 40 MG, QD
     Route: 048
     Dates: start: 1994
  4. SUMATRIPTAN [Concomitant]
     Indication: MIGRAINE
     Dosage: UNK UNK, PRN
     Route: 048
     Dates: start: 2011
  5. ATENOLOL [Concomitant]
     Indication: MIGRAINE
     Dosage: UNK UNK, PRN
     Route: 048
     Dates: start: 2011
  6. ATENOLOL [Concomitant]
     Indication: BLOOD PRESSURE ABNORMAL

REACTIONS (5)
  - Application site pruritus [Not Recovered/Not Resolved]
  - Application site urticaria [Not Recovered/Not Resolved]
  - Application site dryness [Not Recovered/Not Resolved]
  - Application site pain [Not Recovered/Not Resolved]
  - Application site burn [Not Recovered/Not Resolved]
